FAERS Safety Report 5472343-4 (Version None)
Quarter: 2007Q3

REPORT INFORMATION
  Report Type: 
  Country: None (occurrence: None)
  Receive Date: 20070930
  Receipt Date: 20070921
  Transmission Date: 20080115
  Serious: Yes (Other)
  Sender: FDA-Public Use
  Company Number: CH-SHR-CH-2007-036062

PATIENT
  Sex: Female
  Weight: 0.382 kg

DRUGS (1)
  1. YASMIN [Suspect]
     Dosage: UNK, UNK

REACTIONS (1)
  - NEONATAL ASPIRATION [None]
